FAERS Safety Report 7966244-7 (Version None)
Quarter: 2011Q4

REPORT INFORMATION
  Report Type: 
  Country: None (occurrence: None)
  Receive Date: 20111208
  Receipt Date: 20111130
  Transmission Date: 20120403
  Serious: Yes (Other)
  Sender: FDA-Public Use
  Company Number: PHHY2011IN106388

PATIENT
  Age: 62 Year
  Sex: Male

DRUGS (5)
  1. LENALIDOMIDE [Suspect]
     Dosage: 10 MG, DAILY
  2. LENALIDOMIDE [Suspect]
     Dosage: 10 MG, DAILY
  3. PREDNISOLONE [Suspect]
     Dosage: 50 MG, BID
     Route: 048
  4. MELPHALAN HYDROCHLORIDE [Suspect]
     Dosage: 11 MG, DAILY
  5. ZOLEDRONIC [Suspect]
     Indication: MULTIPLE MYELOMA
     Dosage: 4 MG, UNK
     Route: 042

REACTIONS (1)
  - JAUNDICE [None]
